FAERS Safety Report 5023913-9 (Version None)
Quarter: 2006Q2

REPORT INFORMATION
  Report Type: 
  Country: None (occurrence: None)
  Receive Date: 20060612
  Receipt Date: 20060421
  Transmission Date: 20061013
  Serious: Yes (Hospitalization)
  Sender: FDA-Public Use
  Company Number: JP-BOEHRINGER INGELHEIM PHARMACEUTICALS, INC.-2006-BP-04953NB

PATIENT
  Sex: Female

DRUGS (8)
  1. MICARDIS [Suspect]
     Indication: HYPERTENSION
     Route: 048
     Dates: end: 20060406
  2. LENDORMIN [Suspect]
     Route: 048
     Dates: end: 20060406
  3. ALDACTONE [Concomitant]
     Route: 048
     Dates: end: 20060406
  4. TAKEPRON [Concomitant]
     Route: 048
     Dates: end: 20060223
  5. ROCALTROL [Concomitant]
     Route: 048
     Dates: end: 20060223
  6. PANALDINE [Concomitant]
     Route: 048
     Dates: end: 20060406
  7. HERBESSER [Concomitant]
     Route: 048
     Dates: end: 20060406
  8. ROHYPNOL [Concomitant]
     Route: 048
     Dates: end: 20060406

REACTIONS (1)
  - ANAEMIA [None]
